FAERS Safety Report 8524133-3 (Version None)
Quarter: 2012Q3

REPORT INFORMATION
  Report Type: 
  Country: None (occurrence: None)
  Receive Date: 20120720
  Receipt Date: 20120711
  Transmission Date: 20120928
  Serious: Yes (Other)
  Sender: FDA-Public Use
  Company Number: US-JNJFOC-20120706842

PATIENT
  Sex: Male
  Weight: 72.12 kg

DRUGS (5)
  1. FISH OIL [Concomitant]
     Indication: NUTRITIONAL SUPPORT
     Route: 048
     Dates: start: 20120101
  2. HALDOL [Suspect]
     Indication: POST-TRAUMATIC STRESS DISORDER
     Route: 048
     Dates: start: 20050101, end: 20050101
  3. HALDOL [Suspect]
     Indication: BIPOLAR DISORDER
     Route: 048
     Dates: start: 20050101, end: 20050101
  4. VITAMIN D [Concomitant]
     Indication: NUTRITIONAL SUPPORT
     Route: 048
     Dates: start: 20120101
  5. MULTIPLE VITAMIN [Concomitant]
     Indication: NUTRITIONAL SUPPORT
     Route: 048
     Dates: start: 20120101

REACTIONS (3)
  - MANIA [None]
  - HALLUCINATION [None]
  - TREMOR [None]
